FAERS Safety Report 10046473 (Version 2)
Quarter: 2014Q2

REPORT INFORMATION
  Report Type: Spontaneous
  Country: US (occurrence: US)
  Receive Date: 20140331
  Receipt Date: 20140415
  Transmission Date: 20141212
  Serious: No
  Sender: FDA-Public Use
  Company Number: US-BIOGENIDEC-2014BI027817

PATIENT
  Age: 45 Year
  Sex: Female

DRUGS (16)
  1. TECFIDERA [Suspect]
     Indication: MULTIPLE SCLEROSIS
     Route: 048
     Dates: start: 20140214
  2. DEXILANT [Concomitant]
  3. HYDROCODONE-ACETAMINOPHEN [Concomitant]
  4. KLONOPIN [Concomitant]
  5. LYRICA [Concomitant]
  6. MAGNESIUM [Concomitant]
  7. NAPROXEN [Concomitant]
  8. NASONEX [Concomitant]
  9. BENTYL [Concomitant]
  10. LINACLOTIDE [Concomitant]
  11. LINZESS [Concomitant]
  12. OLANZAPINE [Concomitant]
  13. PRO AIR [Concomitant]
  14. RITALIN [Concomitant]
  15. VITAMIN D [Concomitant]
  16. VIVELLE DOT [Concomitant]

REACTIONS (8)
  - Headache [Not Recovered/Not Resolved]
  - Intestinal obstruction [Unknown]
  - Back pain [Not Recovered/Not Resolved]
  - Ileus [Not Recovered/Not Resolved]
  - Nausea [Not Recovered/Not Resolved]
  - Vomiting [Not Recovered/Not Resolved]
  - Abdominal pain [Not Recovered/Not Resolved]
  - Abdominal discomfort [Unknown]
